FAERS Safety Report 6776192-6 (Version None)
Quarter: 2010Q2

REPORT INFORMATION
  Report Type: 
  Country: None (occurrence: None)
  Receive Date: 20100615
  Receipt Date: 20100601
  Transmission Date: 20101027
  Serious: Yes (Death, Other)
  Sender: FDA-Public Use
  Company Number: 2010SCPR001322

PATIENT
  Age: 57 Year
  Sex: Female

DRUGS (1)
  1. VERAPAMIL [Suspect]
     Indication: DRUG USE FOR UNKNOWN INDICATION
     Dosage: 720 MG, (3 TABLETS)

REACTIONS (2)
  - ACCIDENTAL OVERDOSE [None]
  - DRUG TOXICITY [None]
